FAERS Safety Report 7301287-8 (Version None)
Quarter: 2011Q1

REPORT INFORMATION
  Report Type: 
  Country: None (occurrence: None)
  Receive Date: 20110218
  Receipt Date: 20110211
  Transmission Date: 20110831
  Serious: Yes (Hospitalization)
  Sender: FDA-Public Use
  Company Number: US-ALEXION-A201001643

PATIENT
  Sex: Male

DRUGS (6)
  1. LISINOPRIL [Concomitant]
     Indication: CARDIAC FAILURE CONGESTIVE
     Dosage: UNK, QD
     Route: 048
  2. COREG [Concomitant]
     Dosage: 1 TAB, BID
     Route: 048
  3. FOLIC ACID [Concomitant]
     Dosage: UNK, QD
     Route: 048
  4. SOLIRIS [Suspect]
     Indication: PAROXYSMAL NOCTURNAL HAEMOGLOBINURIA
     Dosage: 900 MG, UNK
     Route: 042
  5. IRON [Concomitant]
     Dosage: UNK, QD
     Route: 048
  6. ASPIRIN [Concomitant]
     Dosage: 325 MG, QD
     Route: 048

REACTIONS (7)
  - HAEMATOCRIT DECREASED [None]
  - CHROMATURIA [None]
  - CHOLECYSTITIS [None]
  - CHOLELITHIASIS [None]
  - WHITE BLOOD CELL COUNT DECREASED [None]
  - HAEMOGLOBINURIA [None]
  - DEHYDRATION [None]
